FAERS Safety Report 11036873 (Version 4)
Quarter: 2015Q3

REPORT INFORMATION
  Report Type: Spontaneous
  Country: JP (occurrence: JP)
  Receive Date: 20150416
  Receipt Date: 20150930
  Transmission Date: 20151125
  Serious: Yes (Death, Other)
  Sender: FDA-Public Use
  Company Number: JP-ROCHE-1543640

PATIENT
  Age: 48 Year
  Sex: Female
  Weight: 47 kg

DRUGS (20)
  1. HERCEPTIN [Concomitant]
     Active Substance: TRASTUZUMAB
     Indication: BREAST CANCER
     Dosage: 91-96 MG
     Route: 041
     Dates: start: 20140227, end: 20140910
  2. RINDERON VG [Concomitant]
     Active Substance: BETAMETHASONE VALERATE\GENTAMICIN SULFATE
     Indication: PROPHYLAXIS
     Dosage: SINGLE USE
     Route: 003
     Dates: start: 20090217
  3. DOCETAXEL. [Concomitant]
     Active Substance: DOCETAXEL
     Indication: BREAST CANCER
     Dosage: REACTON: OEDEMA PERIPHERAL
     Route: 065
     Dates: start: 20140227, end: 20140910
  4. TSUMURA GOREISAN EXTRACT GRANULES [Concomitant]
     Indication: OEDEMA
     Route: 048
     Dates: start: 20140820, end: 20141008
  5. MUCODYNE [Concomitant]
     Active Substance: CARBOCYSTEINE
     Route: 048
     Dates: start: 20141001
  6. HERCEPTIN [Concomitant]
     Active Substance: TRASTUZUMAB
     Indication: BREAST CANCER
     Dosage: 270-280MG
     Route: 041
     Dates: start: 20080516, end: 201003
  7. HICEE [Concomitant]
     Indication: PIGMENTATION DISORDER
     Route: 048
     Dates: start: 20080812, end: 20150719
  8. MAGMITT [Concomitant]
     Active Substance: MAGNESIUM OXIDE
     Route: 048
     Dates: start: 20141001, end: 20141112
  9. KADCYLA [Suspect]
     Active Substance: ADO-TRASTUZUMAB EMTANSINE
     Route: 041
     Dates: start: 20150128, end: 20150715
  10. LASIX [Concomitant]
     Active Substance: FUROSEMIDE
     Indication: OEDEMA
     Route: 048
     Dates: start: 20140709, end: 20141008
  11. XELODA [Suspect]
     Active Substance: CAPECITABINE
     Indication: BREAST CANCER
     Dosage: 1800-2400MG
     Route: 048
     Dates: start: 20120918, end: 20130714
  12. HERCEPTIN [Concomitant]
     Active Substance: TRASTUZUMAB
     Indication: BREAST CANCER
     Dosage: 270-280 MG
     Route: 041
     Dates: start: 20100409, end: 201402
  13. WHITE PETROLATUM [Concomitant]
     Active Substance: PETROLATUM
     Indication: PROPHYLAXIS
     Dosage: SINGLE USE
     Route: 065
     Dates: start: 20121127
  14. NEXIUM [Concomitant]
     Active Substance: ESOMEPRAZOLE MAGNESIUM
     Indication: PROPHYLAXIS
     Route: 048
     Dates: start: 201506, end: 20150619
  15. SAHNE [Concomitant]
     Indication: PROPHYLAXIS
     Dosage: SINGLE USE
     Route: 003
     Dates: start: 20121016
  16. PURSENNID [Concomitant]
     Active Substance: SENNOSIDES A AND B
     Indication: CONSTIPATION
     Route: 048
     Dates: start: 20141001, end: 20141001
  17. METHYCOBAL [Concomitant]
     Active Substance: METHYLCOBALAMIN
     Indication: NEUROPATHY PERIPHERAL
     Route: 048
     Dates: start: 20070710, end: 20150719
  18. CODEINE PHOSPHATE [Concomitant]
     Active Substance: CODEINE PHOSPHATE
     Indication: COUGH
     Route: 048
     Dates: start: 20141001, end: 20141008
  19. KADCYLA [Suspect]
     Active Substance: ADO-TRASTUZUMAB EMTANSINE
     Indication: BREAST CANCER
     Route: 041
     Dates: start: 20141015, end: 20150117
  20. PERJETA [Concomitant]
     Active Substance: PERTUZUMAB
     Indication: BREAST CANCER
     Route: 065
     Dates: start: 20140227, end: 20140910

REACTIONS (6)
  - Cerebral haemorrhage [Fatal]
  - Interstitial lung disease [Unknown]
  - Palmar-plantar erythrodysaesthesia syndrome [Recovering/Resolving]
  - Insomnia [Not Recovered/Not Resolved]
  - Headache [Not Recovered/Not Resolved]
  - Platelet count decreased [Unknown]

NARRATIVE: CASE EVENT DATE: 20121016
